FAERS Safety Report 6911949-X (Version None)
Quarter: 2010Q3

REPORT INFORMATION
  Report Type: 
  Country: None (occurrence: None)
  Receive Date: 20100806
  Receipt Date: 20070920
  Transmission Date: 20110219
  Serious: No
  Sender: FDA-Public Use
  Company Number: US-PFIZER INC-2007055502

PATIENT
  Sex: Female

DRUGS (1)
  1. DETROL LA [Suspect]
     Dates: end: 20070702

REACTIONS (7)
  - BLINDNESS DAY [None]
  - DRY EYE [None]
  - EYE INFECTION [None]
  - EYE IRRITATION [None]
  - EYE PRURITUS [None]
  - HYPERSENSITIVITY [None]
  - LACRIMAL DISORDER [None]
